FAERS Safety Report 4982724-0 (Version None)
Quarter: 2006Q2

REPORT INFORMATION
  Report Type: 
  Country: None (occurrence: None)
  Receive Date: 20060425
  Receipt Date: 20051207
  Transmission Date: 20061013
  Serious: Yes (Hospitalization)
  Sender: FDA-Public Use
  Company Number: US-MERCK-0512USA01271

PATIENT
  Age: 50 Year
  Sex: Male
  Weight: 133 kg

DRUGS (7)
  1. VIOXX [Suspect]
     Indication: ARTHRALGIA
     Route: 048
     Dates: start: 20011228, end: 20020301
  2. GLUCOVANCE [Concomitant]
     Indication: DIABETES MELLITUS
     Route: 065
  3. AVANDIA [Concomitant]
     Indication: DIABETES MELLITUS
     Route: 065
  4. NORVASC [Concomitant]
     Route: 065
  5. MAVIK [Concomitant]
     Indication: HYPERTENSION
     Route: 065
  6. LIPITOR [Concomitant]
     Route: 065
     Dates: start: 20011228
  7. IBUPROFEN [Concomitant]
     Route: 065
     Dates: start: 20010301

REACTIONS (3)
  - ANGIOGRAM [None]
  - MYOCARDIAL INFARCTION [None]
  - STENT PLACEMENT [None]
